FAERS Safety Report 9880999 (Version 1)
Quarter: 2014Q1

REPORT INFORMATION
  Report Type: Spontaneous
  Country: FR (occurrence: FR)
  Receive Date: 20140207
  Receipt Date: 20140207
  Transmission Date: 20141002
  Serious: Yes (Death, Other)
  Sender: FDA-Public Use
  Company Number: FR-JNJFOC-20140119362

PATIENT
  Sex: Male

DRUGS (3)
  1. ZYTIGA [Suspect]
     Indication: PROSTATE CANCER
     Dosage: 250 MG X 4 TABLETS
     Route: 048
     Dates: start: 20131219, end: 20131231
  2. PREDNISOLONE [Suspect]
     Indication: PROSTATE CANCER
     Route: 048
     Dates: start: 20131219, end: 20131231
  3. ENANTONE LP [Concomitant]
     Route: 058
     Dates: start: 2007

REACTIONS (5)
  - Ventricular fibrillation [Fatal]
  - Malaise [Unknown]
  - Bundle branch block right [Recovered/Resolved]
  - Diarrhoea [Unknown]
  - Atrial fibrillation [Recovered/Resolved]
